FAERS Safety Report 22637546 (Version 1)
Quarter: 2023Q2

REPORT INFORMATION
  Report Type: Report from Study
  Country: US (occurrence: US)
  Receive Date: 20230626
  Receipt Date: 20230626
  Transmission Date: 20230722
  Serious: Yes (Other)
  Sender: FDA-Public Use
  Company Number: US-GILEAD-2023-0633549

PATIENT
  Sex: Male

DRUGS (1)
  1. AZTREONAM LYSINE [Suspect]
     Active Substance: AZTREONAM LYSINE
     Indication: Bronchiectasis
     Dosage: INHALE 75 MG (1 ML) VIA ALTERA NEBULIZER THREE TIMES DAILY FOR 28 DAYS, CYCLING ON AND OFF EVERY 28
     Route: 055

REACTIONS (3)
  - Pseudomonas infection [Not Recovered/Not Resolved]
  - Pneumothorax [Not Recovered/Not Resolved]
  - Off label use [Not Recovered/Not Resolved]
